FAERS Safety Report 18799757 (Version 1)
Quarter: 2021Q1

REPORT INFORMATION
  Report Type: Spontaneous
  Country: GR (occurrence: GR)
  Receive Date: 20210128
  Receipt Date: 20210128
  Transmission Date: 20210419
  Serious: Yes (Death, Life-Threatening, Hospitalization, Other)
  Sender: FDA-Public Use
  Company Number: GR-ASTELLAS-2021US002771

PATIENT
  Age: 57 Year
  Sex: Female
  Weight: 64 kg

DRUGS (10)
  1. AMPHOTERICIN B, LIPOSOME [Suspect]
     Active Substance: AMPHOTERICIN B
     Route: 048
     Dates: start: 20040401, end: 20040402
  2. AMPHOTERICIN B, LIPOSOME [Suspect]
     Active Substance: AMPHOTERICIN B
     Route: 042
     Dates: start: 20040407, end: 20040408
  3. AMPHOTERICIN B, LIPOSOME [Suspect]
     Active Substance: AMPHOTERICIN B
     Route: 042
     Dates: start: 20040403, end: 20040404
  4. AMPHOTERICIN B, LIPOSOME [Suspect]
     Active Substance: AMPHOTERICIN B
     Indication: ANTIFUNGAL PROPHYLAXIS
     Dosage: 50?300 MG, ONCE DAILY
     Route: 042
     Dates: start: 20040401, end: 20040410
  5. TEMODAL [Suspect]
     Active Substance: TEMOZOLOMIDE
     Indication: GLIOBLASTOMA MULTIFORME
     Route: 048
     Dates: start: 20040218, end: 20040322
  6. EPANUTIN [PHENYTOIN] [Suspect]
     Active Substance: PHENYTOIN
     Indication: SEIZURE PROPHYLAXIS
     Route: 048
     Dates: start: 20040316, end: 200404
  7. AMPHOTERICIN B, LIPOSOME [Suspect]
     Active Substance: AMPHOTERICIN B
     Route: 042
     Dates: start: 20040409, end: 20040410
  8. DEPAKIN [Suspect]
     Active Substance: VALPROATE SODIUM
     Indication: SEIZURE PROPHYLAXIS
     Route: 048
     Dates: start: 20040205, end: 20040316
  9. AMPHOTERICIN B, LIPOSOME [Suspect]
     Active Substance: AMPHOTERICIN B
     Dosage: UNK UNK, UNKNOWN FREQ.
     Route: 042
     Dates: start: 20040405, end: 20040406
  10. MEDROL [Suspect]
     Active Substance: METHYLPREDNISOLONE
     Indication: GLIOBLASTOMA MULTIFORME
     Dosage: 16 MG, TID?BID
     Route: 048
     Dates: start: 20040218

REACTIONS (6)
  - Febrile neutropenia [Fatal]
  - Myelosuppression [Fatal]
  - Disease progression [Fatal]
  - Hypokalaemia [Fatal]
  - Thrombocytopenia [Fatal]
  - Pancytopenia [Fatal]

NARRATIVE: CASE EVENT DATE: 20040322
